FAERS Safety Report 23366642 (Version 1)
Quarter: 2024Q1

REPORT INFORMATION
  Report Type: Spontaneous
  Country: JP (occurrence: None)
  Receive Date: 20240104
  Receipt Date: 20240104
  Transmission Date: 20240410
  Serious: Yes (Other)
  Sender: FDA-Public Use
  Company Number: 2023A295497

PATIENT
  Age: 67 Year
  Sex: Male

DRUGS (5)
  1. DURVALUMAB [Suspect]
     Active Substance: DURVALUMAB
     Indication: Small cell lung cancer
     Dosage: (1500 MG/BODY ON DAY 1)
  2. CARBOPLATIN [Suspect]
     Active Substance: CARBOPLATIN
     Indication: Small cell lung cancer
     Dosage: 125 MG/BODY ON DAY 1
  3. CARBOPLATIN [Suspect]
     Active Substance: CARBOPLATIN
     Indication: Small cell lung cancer
     Dosage: 100 MG/BODY ON DAY 1
  4. ETOPOSIDE [Suspect]
     Active Substance: ETOPOSIDE
     Indication: Small cell lung cancer
     Dosage: 50 MG/M2, 89 MG/BODY ON DAYS 1 AND 3
  5. ETOPOSIDE [Suspect]
     Active Substance: ETOPOSIDE
     Indication: Small cell lung cancer
     Dosage: 40 MG/M2, 69 MG/BODY ON DAYS 1 AND 3

REACTIONS (4)
  - Neutropenia [Unknown]
  - Upper gastrointestinal haemorrhage [Unknown]
  - Malignant neoplasm progression [Unknown]
  - Anaemia [Unknown]
